FAERS Safety Report 17920294 (Version 2)
Quarter: 2020Q3

REPORT INFORMATION
  Report Type: Spontaneous
  Country: CA (occurrence: CA)
  Receive Date: 20200620
  Receipt Date: 20200819
  Transmission Date: 20201103
  Serious: Yes (Death, Other)
  Sender: FDA-Public Use
  Company Number: CA-ACCORD-185741

PATIENT
  Age: 35 Year
  Sex: Male
  Weight: 65 kg

DRUGS (3)
  1. ESCITALOPRAM [Suspect]
     Active Substance: ESCITALOPRAM OXALATE
     Indication: ANXIETY
     Dosage: 3 EVERY 1 DAYS
     Route: 048
  2. CLONAZEPAM. [Suspect]
     Active Substance: CLONAZEPAM
     Indication: ANXIETY
     Dosage: 3 EVERY 1 DAYS
     Route: 048
  3. ZOPICLONE [Suspect]
     Active Substance: ZOPICLONE
     Indication: ANXIETY
     Dosage: 3 EVERY 1 DAYS
     Route: 048

REACTIONS (5)
  - Suicidal ideation [Fatal]
  - Drug ineffective [Fatal]
  - Muscular weakness [Fatal]
  - Completed suicide [Fatal]
  - Feeling abnormal [Fatal]
